FAERS Safety Report 11940842 (Version 3)
Quarter: 2016Q1

REPORT INFORMATION
  Report Type: Report from Study
  Country: BR (occurrence: BR)
  Receive Date: 20160122
  Receipt Date: 20160202
  Transmission Date: 20160526
  Serious: Yes (Hospitalization, Other)
  Sender: FDA-Public Use
  Company Number: PHHY2016BR008031

PATIENT
  Age: 71 Year
  Sex: Male
  Weight: 101 kg

DRUGS (6)
  1. ONBREZ BREEZHALER [Suspect]
     Active Substance: INDACATEROL
     Dosage: IN THE MORNING
     Route: 065
  2. SEEBRI BREEZHALER [Suspect]
     Active Substance: GLYCOPYRROLATE
     Indication: DYSPNOEA
     Dosage: 1 DF, QD (IMMEDIATELY AFTER USING ONBREZ 150 MCG)
     Route: 055
     Dates: start: 20160108
  3. ONBREZ BREEZHALER [Suspect]
     Active Substance: INDACATEROL
     Indication: EMPHYSEMA
     Dosage: 150 UG, QD (30 CAPSULES)
     Route: 055
  4. ONBREZ BREEZHALER [Suspect]
     Active Substance: INDACATEROL
     Indication: CHRONIC OBSTRUCTIVE PULMONARY DISEASE
     Dosage: 150 UG, BID
     Route: 055
     Dates: start: 20151229, end: 20151231
  5. EXFORGE HCT [Concomitant]
     Active Substance: AMLODIPINE BESYLATE\HYDROCHLOROTHIAZIDE\VALSARTAN
     Indication: PRODUCT USED FOR UNKNOWN INDICATION
     Route: 065
  6. SEEBRI BREEZHALER [Suspect]
     Active Substance: GLYCOPYRROLATE
     Indication: LOWER RESPIRATORY TRACT INFECTION

REACTIONS (11)
  - Lung disorder [Unknown]
  - Product use issue [Unknown]
  - Cardiac disorder [Unknown]
  - Fatigue [Recovering/Resolving]
  - Lung infection [Recovering/Resolving]
  - Arrhythmia [Recovering/Resolving]
  - Pyrexia [Unknown]
  - Cardiogenic shock [Recovering/Resolving]
  - Hypertension [Unknown]
  - Hypoxia [Unknown]
  - Insomnia [Recovering/Resolving]

NARRATIVE: CASE EVENT DATE: 201512
